FAERS Safety Report 9400123 (Version 3)
Quarter: 2014Q4

REPORT INFORMATION
  Report Type: Report from Study
  Country: ES (occurrence: ES)
  Receive Date: 20130715
  Receipt Date: 20141103
  Transmission Date: 20150529
  Serious: Yes (Hospitalization, Other)
  Sender: FDA-Public Use
  Company Number: ES-ROCHE-1248338

PATIENT
  Age: 61 Year
  Sex: Male
  Weight: 78 kg

DRUGS (19)
  1. RIBAVIRIN. [Suspect]
     Active Substance: RIBAVIRIN
     Indication: HEPATITIS C
     Route: 048
     Dates: start: 20130624, end: 20130711
  2. RIBAVIRIN. [Suspect]
     Active Substance: RIBAVIRIN
     Dosage: ONGOING
     Route: 048
  3. AMERIDE [Concomitant]
     Active Substance: AMILORIDE HYDROCHLORIDE\HYDROCHLOROTHIAZIDE
     Route: 048
     Dates: start: 20111024, end: 20130701
  4. SUMIAL [Concomitant]
     Active Substance: PROPRANOLOL HYDROCHLORIDE
     Route: 048
     Dates: start: 20130724
  5. SEGURIL [Concomitant]
     Active Substance: FUROSEMIDE
     Route: 065
  6. LORAZEPAM. [Concomitant]
     Active Substance: LORAZEPAM
  7. BI 201335 [Suspect]
     Active Substance: FALDAPREVIR
     Indication: HEPATITIS C
     Route: 048
     Dates: start: 20130624, end: 20130711
  8. SUMIAL [Concomitant]
     Active Substance: PROPRANOLOL HYDROCHLORIDE
     Route: 048
     Dates: start: 20100120, end: 20130717
  9. BI 201335 [Suspect]
     Active Substance: FALDAPREVIR
     Dosage: ONGOING
     Route: 048
  10. AMERIDE [Concomitant]
     Active Substance: AMILORIDE HYDROCHLORIDE\HYDROCHLOROTHIAZIDE
     Route: 048
     Dates: start: 20130731
  11. TAMSULOSINA [Concomitant]
     Active Substance: TAMSULOSIN HYDROCHLORIDE
     Route: 048
     Dates: start: 20110801
  12. BI 207127 [Suspect]
     Active Substance: DELEOBUVIR
     Indication: HEPATITIS C
     Route: 048
     Dates: start: 20130624, end: 20130711
  13. HUMULIN NOS [Concomitant]
     Active Substance: INSULIN HUMAN
     Dosage: 125 MG/5ML
     Route: 065
     Dates: start: 20130701, end: 20130704
  14. NOVORAPID [Concomitant]
     Active Substance: INSULIN ASPART
     Route: 065
     Dates: start: 20130720
  15. POTASSIUM CHLORIDE. [Concomitant]
     Active Substance: POTASSIUM CHLORIDE
  16. LORMETAZEPAM [Concomitant]
     Active Substance: LORMETAZEPAM
  17. BI 207127 [Suspect]
     Active Substance: DELEOBUVIR
     Dosage: ONGOING
     Route: 048
  18. OMEPRAZOLE. [Concomitant]
     Active Substance: OMEPRAZOLE
     Route: 048
  19. CEFTRIAXONE SODIUM. [Concomitant]
     Active Substance: CEFTRIAXONE SODIUM
     Route: 065
     Dates: start: 20130718

REACTIONS (6)
  - Varices oesophageal [Recovered/Resolved]
  - Hepatic encephalopathy [Recovered/Resolved]
  - Hyponatraemia [Recovered/Resolved]
  - Hepatic encephalopathy [Recovered/Resolved]
  - Hypokalaemia [Recovered/Resolved]
  - Upper gastrointestinal haemorrhage [Recovered/Resolved]

NARRATIVE: CASE EVENT DATE: 20130627
